FAERS Safety Report 15600722 (Version 2)
Quarter: 2018Q4

REPORT INFORMATION
  Report Type: Spontaneous
  Country: US (occurrence: US)
  Receive Date: 20181109
  Receipt Date: 20181205
  Transmission Date: 20190205
  Serious: Yes (Other)
  Sender: FDA-Public Use
  Company Number: US-LEO PHARMA-314856

PATIENT
  Age: 21 Year
  Sex: Female

DRUGS (5)
  1. DESONATE [Suspect]
     Active Substance: DESONIDE
     Indication: SEBACEOUS ADENITIS
     Dosage: UNK
  2. METRONIDAZOLE. [Suspect]
     Active Substance: METRONIDAZOLE
     Indication: SEBACEOUS ADENITIS
     Dosage: UNK
     Route: 061
  3. SKINOREN [Suspect]
     Active Substance: AZELAIC ACID
     Indication: SEBACEOUS ADENITIS
  4. CONTRACEPTIVES NOS [Concomitant]
     Active Substance: UNSPECIFIED INGREDIENT
     Indication: PRODUCT USED FOR UNKNOWN INDICATION
  5. MINOCYCLINE [Suspect]
     Active Substance: MINOCYCLINE\MINOCYCLINE HYDROCHLORIDE
     Indication: SEBACEOUS ADENITIS
     Dosage: UNK

REACTIONS (6)
  - Drug ineffective for unapproved indication [Unknown]
  - Burning sensation [Unknown]
  - Scar [Unknown]
  - Skin atrophy [Unknown]
  - Sebaceous adenitis [Unknown]
  - Product use in unapproved indication [Unknown]
